FAERS Safety Report 10195291 (Version 2)
Quarter: 2014Q3

REPORT INFORMATION
  Report Type: Spontaneous
  Country: US (occurrence: US)
  Receive Date: 20140526
  Receipt Date: 20140709
  Transmission Date: 20150326
  Serious: Yes (Other)
  Sender: FDA-Public Use
  Company Number: US-UCBSA-121322

PATIENT
  Age: 8 Year
  Sex: Male
  Weight: 50.79 kg

DRUGS (4)
  1. AZELASTINE HYDROCHLORIDE. [Concomitant]
     Active Substance: AZELASTINE HYDROCHLORIDE
  2. ALBUTEROL. [Concomitant]
     Active Substance: ALBUTEROL
     Dosage: AS NEEDED (PRN)
  3. BUDESONIDE. [Concomitant]
     Active Substance: BUDESONIDE
  4. LEVOCETIRIZINE [Suspect]
     Active Substance: LEVOCETIRIZINE
     Indication: HYPERSENSITIVITY
     Dosage: 0.5MG PER 1ML 2 TEASPOONS IN THE EVENING
     Dates: start: 201404, end: 2014

REACTIONS (7)
  - Swelling face [Recovered/Resolved]
  - Abdominal pain upper [Recovered/Resolved]
  - Peripheral swelling [Recovered/Resolved]
  - Drug hypersensitivity [Recovered/Resolved]
  - Generalised oedema [Recovered/Resolved]
  - Vomiting [Recovered/Resolved]
  - Diarrhoea [Recovered/Resolved]

NARRATIVE: CASE EVENT DATE: 201405
